FAERS Safety Report 24357192 (Version 1)
Quarter: 2024Q3

REPORT INFORMATION
  Report Type: Spontaneous
  Country: US (occurrence: US)
  Receive Date: 20240924
  Receipt Date: 20240924
  Transmission Date: 20241017
  Serious: No
  Sender: MERCK
  Company Number: US-009507513-2409USA007520

PATIENT
  Age: 75 Year
  Sex: Female

DRUGS (1)
  1. JANUMET [Suspect]
     Active Substance: METFORMIN HYDROCHLORIDE\SITAGLIPTIN PHOSPHATE
     Dosage: STRENGTH:50/1000, 1 TABLET TWICE DAILY
     Route: 048

REACTIONS (2)
  - Prescription drug used without a prescription [Unknown]
  - No adverse event [Unknown]

NARRATIVE: CASE EVENT DATE: 20240401
